FAERS Safety Report 4575486-2 (Version None)
Quarter: 2005Q1

REPORT INFORMATION
  Report Type: 
  Country: None (occurrence: None)
  Receive Date: 20050131
  Receipt Date: 20050131
  Transmission Date: 20050727
  Serious: Yes (Other)
  Sender: FDA-Public Use
  Company Number: None

PATIENT
  Age: 34 Year
  Sex: Female
  Weight: 57.1532 kg

DRUGS (4)
  1. NUVARING [Suspect]
     Indication: ANAEMIA
     Dosage: 0.120/0.015   ONCE A WEEK   VAGINAL
     Route: 067
     Dates: start: 20040402, end: 20041229
  2. NUVARING [Suspect]
     Indication: DYSMENORRHOEA
     Dosage: 0.120/0.015   ONCE A WEEK   VAGINAL
     Route: 067
     Dates: start: 20040402, end: 20041229
  3. NUVARING [Suspect]
  4. DOSTINEX [Concomitant]

REACTIONS (2)
  - LABORATORY TEST ABNORMAL [None]
  - MENSTRUAL DISORDER [None]
